FAERS Safety Report 7845841-3 (Version None)
Quarter: 2011Q4

REPORT INFORMATION
  Report Type: 
  Country: None (occurrence: None)
  Receive Date: 20111025
  Receipt Date: 20111020
  Transmission Date: 20120403
  Serious: Yes (Hospitalization)
  Sender: FDA-Public Use
  Company Number: SE-BAYER-2011-102444

PATIENT
  Age: 84 Year
  Sex: Male

DRUGS (9)
  1. WARFARIN SODIUM [Suspect]
     Indication: ATRIAL FIBRILLATION
     Dosage: UNK
     Dates: end: 20110504
  2. CALCITUGG [Concomitant]
  3. LEVOTHYROXINE SODIUM [Concomitant]
  4. ACETAMINOPHEN [Concomitant]
  5. METOPROLOL TARTRATE [Concomitant]
  6. NEORECORMON [Concomitant]
  7. MOVIPREP [Concomitant]
  8. ISOSORBIDE MONONITRATE [Concomitant]
  9. CIPROFLOXACIN HCL [Suspect]
     Dosage: UNK
     Route: 048
     Dates: start: 20110422

REACTIONS (2)
  - RENAL FAILURE ACUTE [None]
  - MELAENA [None]
